FAERS Safety Report 4338252-9 (Version None)
Quarter: 2004Q2

REPORT INFORMATION
  Report Type: 
  Country: None (occurrence: None)
  Receive Date: 20040409
  Receipt Date: 20040329
  Transmission Date: 20050107
  Serious: Yes (Hospitalization, Other)
  Sender: FDA-Public Use
  Company Number: CA-JNJFOC-20040305497

PATIENT
  Age: 34 Year
  Sex: Female

DRUGS (1)
  1. REMICADE [Suspect]
     Indication: CROHN'S DISEASE
     Dosage: INTRAVENOUS
     Route: 042
     Dates: start: 20021202, end: 20021202

REACTIONS (13)
  - ARTHRALGIA [None]
  - ASTHENIA [None]
  - BLOOD URIC ACID DECREASED [None]
  - CHEST PAIN [None]
  - FEELING COLD [None]
  - GAIT DISTURBANCE [None]
  - INFLUENZA [None]
  - MUSCULOSKELETAL DISCOMFORT [None]
  - MYALGIA [None]
  - NEUROPATHY PERIPHERAL [None]
  - RED BLOOD CELL SEDIMENTATION RATE INCREASED [None]
  - SCIATICA [None]
  - THERAPY NON-RESPONDER [None]
